FAERS Safety Report 16232678 (Version 1)
Quarter: 2019Q2

REPORT INFORMATION
  Report Type: Spontaneous
  Country: US (occurrence: US)
  Receive Date: 20190424
  Receipt Date: 20190424
  Transmission Date: 20190711
  Serious: No
  Sender: FDA-Public Use
  Company Number: US-ASTRAZENECA-2019SE50036

PATIENT
  Age: 69 Week

DRUGS (1)
  1. SYMBICORT [Suspect]
     Active Substance: BUDESONIDE\FORMOTEROL FUMARATE DIHYDRATE
     Indication: LUNG DISORDER
     Dosage: 160/4.5 MCG 2 PUFFS TWICE A DAY
     Route: 055
     Dates: start: 2018

REACTIONS (8)
  - Bronchial hyperreactivity [Unknown]
  - Product use issue [Unknown]
  - Device defective [Unknown]
  - Product use in unapproved indication [Unknown]
  - Off label use [Unknown]
  - Blood pressure decreased [Unknown]
  - Product dose omission [Not Recovered/Not Resolved]
  - Device breakage [Unknown]

NARRATIVE: CASE EVENT DATE: 20190326
